FAERS Safety Report 10980278 (Version 1)
Quarter: 2015Q2

REPORT INFORMATION
  Report Type: Spontaneous
  Country: US (occurrence: US)
  Receive Date: 20150402
  Receipt Date: 20150402
  Transmission Date: 20150821
  Serious: No
  Sender: FDA-Public Use
  Company Number: US-009507513-1503USA013070

PATIENT
  Sex: Female

DRUGS (1)
  1. COPPERTONE CLEARLY SHEER FOR SUNNY DAYS SPF 30 [Suspect]
     Active Substance: AVOBENZONE\OCTOCRYLENE\OXYBENZONE
     Indication: PRODUCT USED FOR UNKNOWN INDICATION
     Dosage: UNK, UNKNOWN
     Route: 061

REACTIONS (1)
  - Skin reaction [Unknown]
